FAERS Safety Report 25467992 (Version 1)
Quarter: 2025Q2

REPORT INFORMATION
  Report Type: Other
  Country: PL (occurrence: PL)
  Receive Date: 20250623
  Receipt Date: 20250623
  Transmission Date: 20250717
  Serious: Yes (Life-Threatening, Hospitalization, Other)
  Sender: SERVIER
  Company Number: None

PATIENT

DRUGS (53)
  1. PEGASPARGASE [Suspect]
     Active Substance: PEGASPARGASE
     Indication: Leukaemia recurrent
     Route: 065
  2. PEGASPARGASE [Suspect]
     Active Substance: PEGASPARGASE
     Indication: Acute lymphocytic leukaemia
     Route: 065
  3. PEGASPARGASE [Suspect]
     Active Substance: PEGASPARGASE
     Route: 042
  4. PEGASPARGASE [Suspect]
     Active Substance: PEGASPARGASE
     Route: 042
  5. PEGASPARGASE [Suspect]
     Active Substance: PEGASPARGASE
     Route: 065
  6. DOXORUBICIN HYDROCHLORIDE [Suspect]
     Active Substance: DOXORUBICIN HYDROCHLORIDE
     Indication: Leukaemia recurrent
     Route: 065
  7. DOXORUBICIN HYDROCHLORIDE [Suspect]
     Active Substance: DOXORUBICIN HYDROCHLORIDE
     Indication: Acute lymphocytic leukaemia
  8. IDARUBICIN HYDROCHLORIDE [Suspect]
     Active Substance: IDARUBICIN HYDROCHLORIDE
     Indication: Leukaemia recurrent
     Route: 042
  9. CYCLOPHOSPHAMIDE [Suspect]
     Active Substance: CYCLOPHOSPHAMIDE
     Indication: Leukaemia recurrent
     Route: 065
  10. CYCLOPHOSPHAMIDE [Suspect]
     Active Substance: CYCLOPHOSPHAMIDE
     Indication: Acute lymphocytic leukaemia
     Route: 065
  11. CYTARABINE [Suspect]
     Active Substance: CYTARABINE
     Indication: Leukaemia recurrent
     Route: 042
  12. CYTARABINE [Suspect]
     Active Substance: CYTARABINE
     Indication: Acute lymphocytic leukaemia
     Dosage: 3 G/M2 I.V. EVERY 12 HOURS (DAY 1 AND 2 OF WEEK 3)
     Route: 042
  13. CYTARABINE [Suspect]
     Active Substance: CYTARABINE
     Route: 065
  14. CYTARABINE [Suspect]
     Active Substance: CYTARABINE
     Route: 065
  15. CYTARABINE [Suspect]
     Active Substance: CYTARABINE
     Route: 042
  16. CYTARABINE [Suspect]
     Active Substance: CYTARABINE
     Route: 065
  17. CYTARABINE [Suspect]
     Active Substance: CYTARABINE
     Dosage: 2 G/M2 I.V. EVERY 12 HOURS, DAY 5 OF WEEK 13, 19, AND 25
     Route: 042
  18. CYTARABINE [Suspect]
     Active Substance: CYTARABINE
     Route: 065
  19. DAUNORUBICIN [Suspect]
     Active Substance: DAUNORUBICIN
     Indication: Leukaemia recurrent
     Route: 065
  20. DAUNORUBICIN [Suspect]
     Active Substance: DAUNORUBICIN
     Indication: Acute lymphocytic leukaemia
  21. DEXAMETHASONE [Suspect]
     Active Substance: DEXAMETHASONE
     Indication: Leukaemia recurrent
     Route: 048
  22. DEXAMETHASONE [Suspect]
     Active Substance: DEXAMETHASONE
     Indication: Acute lymphocytic leukaemia
     Route: 048
  23. DEXAMETHASONE [Suspect]
     Active Substance: DEXAMETHASONE
     Route: 048
  24. DEXAMETHASONE [Suspect]
     Active Substance: DEXAMETHASONE
     Route: 048
  25. METHOTREXATE [Suspect]
     Active Substance: METHOTREXATE
     Indication: Leukaemia recurrent
     Route: 037
  26. METHOTREXATE [Suspect]
     Active Substance: METHOTREXATE
     Indication: Acute lymphocytic leukaemia
     Route: 065
  27. METHOTREXATE [Suspect]
     Active Substance: METHOTREXATE
     Route: 065
  28. METHOTREXATE [Suspect]
     Active Substance: METHOTREXATE
     Route: 037
  29. METHOTREXATE [Suspect]
     Active Substance: METHOTREXATE
     Route: 037
  30. METHOTREXATE [Suspect]
     Active Substance: METHOTREXATE
     Route: 065
  31. METHOTREXATE [Suspect]
     Active Substance: METHOTREXATE
     Route: 037
  32. METHOTREXATE [Suspect]
     Active Substance: METHOTREXATE
     Route: 037
  33. METHOTREXATE [Suspect]
     Active Substance: METHOTREXATE
     Route: 048
  34. METHOTREXATE [Suspect]
     Active Substance: METHOTREXATE
     Route: 042
  35. METHOTREXATE [Suspect]
     Active Substance: METHOTREXATE
     Route: 037
  36. METHOTREXATE [Suspect]
     Active Substance: METHOTREXATE
     Route: 037
  37. METHOTREXATE [Suspect]
     Active Substance: METHOTREXATE
     Route: 037
  38. MERCAPTOPURINE [Suspect]
     Active Substance: MERCAPTOPURINE
     Indication: Leukaemia recurrent
     Dosage: 60 MG/M2, 1X/DAY (DAYS 36-49)CONSOLIDATION A  )
     Route: 048
  39. MERCAPTOPURINE [Suspect]
     Active Substance: MERCAPTOPURINE
     Indication: Acute lymphocytic leukaemia
     Dosage: 60 MG/M2, 1X/DAY (DAYS 50-63) CONSOLIDATION BSHORT )
     Route: 048
  40. MERCAPTOPURINE [Suspect]
     Active Substance: MERCAPTOPURINE
     Dosage: 25 MG/M2, 1X/DAY DAY 1-56/ PROTOCOL M
     Route: 048
  41. MERCAPTOPURINE [Suspect]
     Active Substance: MERCAPTOPURINE
     Dosage: 50 MG/M2, 1X/DAY (MAINTENANCE THERAPY)
     Route: 048
  42. MERCAPTOPURINE [Suspect]
     Active Substance: MERCAPTOPURINE
     Route: 048
  43. PREDNISONE [Suspect]
     Active Substance: PREDNISONE
     Indication: Leukaemia recurrent
     Dosage: 60 MG/M2/DAY P.O. DIVIDED INTO 3 DOSES PER DAY (DAYS 1-28 (FROM DAY 29, TAPERING OVER 9 DAYS WITH HA
     Route: 048
  44. PREDNISONE [Suspect]
     Active Substance: PREDNISONE
     Indication: Acute lymphocytic leukaemia
  45. PREDNISOLONE [Suspect]
     Active Substance: PREDNISOLONE
     Indication: Leukaemia recurrent
     Route: 065
  46. PREDNISOLONE [Suspect]
     Active Substance: PREDNISOLONE
     Indication: Acute lymphocytic leukaemia
     Route: 065
  47. THIOGUANINE [Suspect]
     Active Substance: THIOGUANINE
     Indication: Leukaemia recurrent
     Route: 048
  48. THIOGUANINE [Suspect]
     Active Substance: THIOGUANINE
     Indication: Acute lymphocytic leukaemia
     Route: 048
  49. VINCRISTINE [Suspect]
     Active Substance: VINCRISTINE
     Indication: Leukaemia recurrent
     Route: 042
  50. VINCRISTINE [Suspect]
     Active Substance: VINCRISTINE
     Indication: Acute lymphocytic leukaemia
     Route: 042
  51. VINCRISTINE [Suspect]
     Active Substance: VINCRISTINE
     Route: 042
  52. VINCRISTINE [Suspect]
     Active Substance: VINCRISTINE
     Route: 042
  53. VINCRISTINE [Suspect]
     Active Substance: VINCRISTINE
     Route: 065

REACTIONS (2)
  - Fournier^s gangrene [Recovered/Resolved]
  - Neutropenia [Unknown]
